FAERS Safety Report 5939996-5 (Version None)
Quarter: 2008Q4

REPORT INFORMATION
  Report Type: 
  Country: None (occurrence: None)
  Receive Date: 20081104
  Receipt Date: 20081023
  Transmission Date: 20090506
  Serious: Yes (Life-Threatening, Hospitalization)
  Sender: FDA-Public Use
  Company Number: SI-BAXTER-2008BH011401

PATIENT
  Weight: 72 kg

DRUGS (4)
  1. EXTRANEAL [Suspect]
     Indication: PERITONEAL DIALYSIS
     Dosage: DOSE UNIT:UNKNOWN
     Route: 033
  2. DIANEAL [Suspect]
     Indication: PERITONEAL DIALYSIS
     Dosage: DOSE UNIT:UNKNOWN
     Route: 033
  3. ACE INHIBITOR NOS [Concomitant]
  4. ANGIOTENSIN II ANTAGONISTS [Concomitant]

REACTIONS (1)
  - SCLEROSING ENCAPSULATING PERITONITIS [None]
